FAERS Safety Report 11781935 (Version 1)
Quarter: 2015Q4

REPORT INFORMATION
  Report Type: Spontaneous
  Country: US (occurrence: US)
  Receive Date: 20151126
  Receipt Date: 20151126
  Transmission Date: 20160305
  Serious: Yes (Life-Threatening, Hospitalization)
  Sender: FDA-Public Use
  Company Number: US-ASTRAZENECA-2015SF13298

PATIENT
  Age: 245 Day
  Sex: Female
  Weight: 9.5 kg

DRUGS (6)
  1. PULMICORT RESPULES [Suspect]
     Active Substance: BUDESONIDE
     Indication: WHEEZING
     Route: 055
     Dates: start: 20151113, end: 20151113
  2. DEXAMETHASONE. [Concomitant]
     Active Substance: DEXAMETHASONE
     Indication: CROUP INFECTIOUS
     Route: 048
     Dates: start: 20151113
  3. AMOXICILLIN. [Concomitant]
     Active Substance: AMOXICILLIN
     Indication: OTITIS MEDIA
     Route: 048
     Dates: start: 20151108, end: 20151112
  4. PULMICORT RESPULES [Suspect]
     Active Substance: BUDESONIDE
     Indication: COUGH
     Route: 055
     Dates: start: 20151113, end: 20151113
  5. PULMICORT RESPULES [Suspect]
     Active Substance: BUDESONIDE
     Indication: CROUP INFECTIOUS
     Route: 055
     Dates: start: 20151113, end: 20151113
  6. DEXAMETHASONE. [Concomitant]
     Active Substance: DEXAMETHASONE
     Indication: CROUP INFECTIOUS
     Route: 048
     Dates: start: 20151112, end: 20151113

REACTIONS (5)
  - Product quality issue [Unknown]
  - Lung infection pseudomonal [Unknown]
  - Intentional product misuse [Unknown]
  - Cardio-respiratory arrest [Unknown]
  - Drug administered to patient of inappropriate age [Unknown]

NARRATIVE: CASE EVENT DATE: 20151113
